FAERS Safety Report 4757758-1 (Version None)
Quarter: 2005Q3

REPORT INFORMATION
  Report Type: 
  Country: None (occurrence: None)
  Receive Date: 20050829
  Receipt Date: 20050816
  Transmission Date: 20060218
  Serious: Yes (Other)
  Sender: FDA-Public Use
  Company Number: 2005106706

PATIENT
  Age: 73 Year
  Sex: Female
  Weight: 81.6475 kg

DRUGS (8)
  1. CELEBREX [Suspect]
     Indication: ARTHRITIS
     Dosage: 200 MG (100 MG, 2 IN 1 D), ORAL
     Route: 048
     Dates: end: 20050101
  2. BEXTRA [Suspect]
     Indication: ARTHRITIS
     Dosage: 1 IN 1 D, ORAL
     Route: 048
  3. TOPROL (METOPROLOL) [Concomitant]
  4. NORVASC [Concomitant]
  5. AVALIDE [Concomitant]
  6. NEXIUM [Concomitant]
  7. DOXEPIN HCL [Concomitant]
  8. ATIVAN [Concomitant]

REACTIONS (6)
  - ACTIVITIES OF DAILY LIVING IMPAIRED [None]
  - DIFFICULTY IN WALKING [None]
  - DRUG INEFFECTIVE [None]
  - DRUG RESISTANCE [None]
  - EMPHYSEMA [None]
  - PAIN [None]
